FAERS Safety Report 9492204 (Version 1)
Quarter: 2013Q3

REPORT INFORMATION
  Report Type: Spontaneous
  Country: US (occurrence: US)
  Receive Date: 20130830
  Receipt Date: 20130830
  Transmission Date: 20140515
  Serious: Yes (Hospitalization)
  Sender: FDA-Public Use
  Company Number: US-BAXTER-2013BAX033759

PATIENT
  Sex: Male

DRUGS (5)
  1. DIANEAL LOW CALCIUM [Suspect]
     Indication: PERITONEAL DIALYSIS
     Route: 033
     Dates: start: 20130729
  2. CELLCEPT [Concomitant]
     Indication: ORGAN TRANSPLANT
     Route: 048
  3. PREDNISONE [Concomitant]
     Indication: ORGAN TRANSPLANT
     Route: 048
  4. NEORAL [Concomitant]
     Indication: ORGAN TRANSPLANT
     Route: 048
  5. RANEXA [Concomitant]
     Indication: PRODUCT USED FOR UNKNOWN INDICATION
     Route: 048

REACTIONS (1)
  - Catheter site infection [Recovering/Resolving]
